FAERS Safety Report 8227162-2 (Version None)
Quarter: 2012Q1

REPORT INFORMATION
  Report Type: 
  Country: None (occurrence: None)
  Receive Date: 20120322
  Receipt Date: 20120315
  Transmission Date: 20120608
  Serious: Yes (Death, Life-Threatening)
  Sender: FDA-Public Use
  Company Number: DE-JNJFOC-20110801372

PATIENT
  Age: 94 Year
  Sex: Female

DRUGS (7)
  1. METHIMAZOLE [Concomitant]
     Route: 048
     Dates: end: 20040916
  2. MORPHINE [Concomitant]
     Route: 058
     Dates: start: 20040916, end: 20040917
  3. RISPERDAL [Suspect]
     Indication: PRODUCT USED FOR UNKNOWN INDICATION
     Route: 048
     Dates: start: 20040906, end: 20040915
  4. BISOPROLOL FUMARATE [Concomitant]
     Route: 048
     Dates: end: 20040916
  5. MOLSIDOMIN [Concomitant]
     Route: 048
     Dates: end: 20040916
  6. FUROSEMIDE [Concomitant]
     Route: 048
     Dates: start: 20040906, end: 20040916
  7. MIRTAZAPINE [Suspect]
     Indication: PRODUCT USED FOR UNKNOWN INDICATION
     Route: 048
     Dates: start: 20040826, end: 20040915

REACTIONS (9)
  - RESPIRATORY TRACT CONGESTION [None]
  - DYSPNOEA AT REST [None]
  - WHITE BLOOD CELL COUNT INCREASED [None]
  - BLOOD CREATININE INCREASED [None]
  - C-REACTIVE PROTEIN INCREASED [None]
  - GENERAL PHYSICAL HEALTH DETERIORATION [None]
  - SOMNOLENCE [None]
  - TACHYCARDIA [None]
  - BLOOD POTASSIUM INCREASED [None]
